FAERS Safety Report 12911588 (Version 1)
Quarter: 2016Q4

REPORT INFORMATION
  Report Type: Spontaneous
  Country: US (occurrence: US)
  Receive Date: 20161102
  Receipt Date: 20161102
  Transmission Date: 20170207
  Serious: Yes (Hospitalization)
  Sender: FDA-Public Use
  Company Number: None

PATIENT
  Age: 49 Year
  Sex: Male
  Weight: 78.3 kg

DRUGS (2)
  1. ALLEGRA-D [Concomitant]
     Active Substance: FEXOFENADINE\PSEUDOEPHEDRINE
  2. EVAMIST [Suspect]
     Active Substance: ESTRADIOL
     Indication: OOPHORECTOMY
     Dosage: 1 SPRAY TOPICAL
     Route: 061
     Dates: start: 20160919, end: 20160919

REACTIONS (7)
  - Pain [None]
  - Paraesthesia [None]
  - Unevaluable event [None]
  - Hypoaesthesia [None]
  - Visual impairment [None]
  - Hypoaesthesia eye [None]
  - Cerebral disorder [None]

NARRATIVE: CASE EVENT DATE: 20161016
